FAERS Safety Report 8894899 (Version 1)
Quarter: 2012Q4

REPORT INFORMATION
  Report Type: 
  Country: CA (occurrence: CA)
  Receive Date: 20121107
  Receipt Date: 20121107
  Transmission Date: 20130627
  Serious: Yes (Other)
  Sender: FDA-Public Use
  Company Number: PHHY2006CA010018

PATIENT
  Sex: Male

DRUGS (2)
  1. SANDOSTATIN LAR [Suspect]
     Indication: CARCINOID TUMOUR
     Dosage: 20 mg, once a month
     Dates: start: 20021101
  2. SANDOSTATIN LAR [Suspect]
     Dosage: 30 mg, UNK

REACTIONS (4)
  - Blood pressure decreased [Unknown]
  - Back pain [Unknown]
  - Abdominal pain [Unknown]
  - Constipation [Unknown]
